FAERS Safety Report 23391531 (Version 1)
Quarter: 2024Q1

REPORT INFORMATION
  Report Type: Spontaneous
  Country: US (occurrence: None)
  Receive Date: 20240111
  Receipt Date: 20240111
  Transmission Date: 20240410
  Serious: Yes (Other)
  Sender: FDA-Public Use
  Company Number: None

PATIENT
  Age: 41 Year
  Sex: Female
  Weight: 95 kg

DRUGS (2)
  1. ANAKINRA [Suspect]
     Active Substance: ANAKINRA
     Indication: Chronic infantile neurological cutaneous and articular syndrome
     Dosage: FREQUENCY : DAILY;?
     Route: 058
  2. CANAKINUMAB [Suspect]
     Active Substance: CANAKINUMAB

REACTIONS (4)
  - Cutaneous amyloidosis [None]
  - Secondary amyloidosis [None]
  - Proteinuria [None]
  - Therapeutic product effect incomplete [None]
